FAERS Safety Report 6800562-0 (Version None)
Quarter: 2010Q2

REPORT INFORMATION
  Report Type: 
  Country: None (occurrence: None)
  Receive Date: 20100625
  Receipt Date: 20100625
  Transmission Date: 20101027
  Serious: Yes (Hospitalization, Other)
  Sender: FDA-Public Use
  Company Number: None

PATIENT
  Sex: Female
  Weight: 70 kg

DRUGS (1)
  1. NPLATE [Suspect]
     Indication: IDIOPATHIC THROMBOCYTOPENIC PURPURA
     Dosage: 500MCG WEEKLY SQ
     Route: 058
     Dates: start: 20080101

REACTIONS (2)
  - RENAL DISORDER [None]
  - SYSTEMIC LUPUS ERYTHEMATOSUS [None]
